FAERS Safety Report 11662126 (Version 1)
Quarter: 2015Q4

REPORT INFORMATION
  Report Type: Report from Study
  Country: US (occurrence: US)
  Receive Date: 20151026
  Receipt Date: 20151026
  Transmission Date: 20160304
  Serious: Yes (Other)
  Sender: FDA-Public Use
  Company Number: US-GILEAD-2015-0178802

PATIENT
  Age: 56 Year
  Sex: Male

DRUGS (1)
  1. IDELALISIB [Suspect]
     Active Substance: IDELALISIB
     Indication: LYMPHADENOPATHY
     Dosage: 150 MG, BID
     Route: 048
     Dates: start: 20150827

REACTIONS (2)
  - Off label use [Unknown]
  - Transplant [Unknown]
